FAERS Safety Report 9393158 (Version 1)
Quarter: 2013Q3

REPORT INFORMATION
  Report Type: Report from Study
  Country: GB (occurrence: GB)
  Receive Date: 20130710
  Receipt Date: 20130710
  Transmission Date: 20140515
  Serious: Yes (Other)
  Sender: FDA-Public Use
  Company Number: GB-BAYER-2013-083922

PATIENT
  Sex: Female

DRUGS (3)
  1. BETAFERON [Suspect]
     Indication: MULTIPLE SCLEROSIS
     Dosage: 250 ?G, QOD
     Route: 058
  2. BETAFERON [Suspect]
     Indication: MULTIPLE SCLEROSIS
     Dosage: 125 ?G, QOD
     Route: 058
     Dates: start: 20130703
  3. PARACETAMOL [Concomitant]

REACTIONS (8)
  - Cardiac disorder [None]
  - Chills [None]
  - Muscle spasms [None]
  - Malaise [None]
  - Chest discomfort [None]
  - Pain in extremity [None]
  - Musculoskeletal stiffness [Not Recovered/Not Resolved]
  - Hemiparesis [Not Recovered/Not Resolved]
